FAERS Safety Report 9359905 (Version 2)
Quarter: 2013Q3

REPORT INFORMATION
  Report Type: Spontaneous
  Country: US (occurrence: US)
  Receive Date: 20130621
  Receipt Date: 20130902
  Transmission Date: 20140515
  Serious: Yes (Other)
  Sender: FDA-Public Use
  Company Number: US-009507513-1306USA008547

PATIENT
  Age: 22 Year
  Sex: Female

DRUGS (1)
  1. NEXPLANON [Suspect]
     Indication: CONTRACEPTION
     Dosage: 68MILLIGRAM/ONE ROD EVERY 3 YEAR
     Route: 059
     Dates: start: 20130423, end: 20130617

REACTIONS (1)
  - Convulsion [Unknown]
